FAERS Safety Report 4371662-2 (Version None)
Quarter: 2004Q2

REPORT INFORMATION
  Report Type: 
  Country: None (occurrence: None)
  Receive Date: 20040603
  Receipt Date: 20040603
  Transmission Date: 20050107
  Serious: Yes (Hospitalization)
  Sender: FDA-Public Use
  Company Number: None

PATIENT
  Age: 60 Year
  Weight: 34.0198 kg

DRUGS (2)
  1. BACLOFEN [Suspect]
  2. RADIATION [Suspect]

REACTIONS (2)
  - IMPLANT SITE REACTION [None]
  - MEDICATION ERROR [None]
